FAERS Safety Report 9455439 (Version 1)
Quarter: 2013Q3

REPORT INFORMATION
  Report Type: Spontaneous
  Country: CA (occurrence: CA)
  Receive Date: 20130813
  Receipt Date: 20130813
  Transmission Date: 20140515
  Serious: Yes (Death, Other)
  Sender: FDA-Public Use
  Company Number: PHHY2013CA085936

PATIENT
  Age: 89 Year
  Sex: Female

DRUGS (1)
  1. MIACALCIN [Suspect]
     Dosage: UNK UKN, UNK

REACTIONS (2)
  - Death [Fatal]
  - Gastric cancer [Unknown]
